FAERS Safety Report 4499499-4 (Version None)
Quarter: 2004Q4

REPORT INFORMATION
  Report Type: 
  Country: None (occurrence: None)
  Receive Date: 20040928
  Receipt Date: 20040622
  Transmission Date: 20050328
  Serious: No
  Sender: FDA-Public Use
  Company Number: 04P-163-0264502-00

PATIENT
  Age: 59 Year
  Sex: Female

DRUGS (9)
  1. HUMIRA [Suspect]
     Indication: RHEUMATOID ARTHRITIS
     Dosage: 40 MG, 2 IN 1 WK, SUBCUTANEOUS;  40 MG, 1 IN 2 WK, SUBCUTANEOUS
     Route: 058
     Dates: start: 20040601, end: 20040619
  2. HUMIRA [Suspect]
     Indication: RHEUMATOID ARTHRITIS
     Dosage: 40 MG, 2 IN 1 WK, SUBCUTANEOUS;  40 MG, 1 IN 2 WK, SUBCUTANEOUS
     Route: 058
     Dates: start: 20040619
  3. METHOTREXATE [Concomitant]
  4. FOLIC ACID [Concomitant]
  5. GLUCOPHAGE [Concomitant]
  6. PREDNISONE [Concomitant]
  7. LISINOPRIL [Concomitant]
  8. SULINDAC [Concomitant]
  9. FLUOXETINE HYDROCHLORIDE [Concomitant]

REACTIONS (1)
  - ACCIDENTAL OVERDOSE [None]
